FAERS Safety Report 15435572 (Version 1)
Quarter: 2018Q3

REPORT INFORMATION
  Report Type: Spontaneous
  Country: CA (occurrence: CA)
  Receive Date: 20180927
  Receipt Date: 20180927
  Transmission Date: 20181010
  Serious: Yes (Hospitalization)
  Sender: FDA-Public Use
  Company Number: CA-MYLANLABS-2018M1070143

PATIENT
  Age: 44 Year
  Sex: Female

DRUGS (2)
  1. MYLAN?PANTOPRAZOLE T [Suspect]
     Active Substance: PANTOPRAZOLE
     Indication: GASTROOESOPHAGEAL REFLUX DISEASE
     Dosage: 40 MG, QD
     Route: 048
  2. MYLAN?PANTOPRAZOLE T [Suspect]
     Active Substance: PANTOPRAZOLE
     Indication: COUGH

REACTIONS (4)
  - Influenza like illness [Recovered/Resolved]
  - Haematochezia [Recovered/Resolved]
  - Diarrhoea [Recovered/Resolved]
  - Vomiting [Recovered/Resolved]
